FAERS Safety Report 24925380 (Version 1)
Quarter: 2025Q1

REPORT INFORMATION
  Report Type: Report from Study
  Country: US (occurrence: US)
  Receive Date: 20250204
  Receipt Date: 20250204
  Transmission Date: 20250409
  Serious: No
  Sender: EXELIXIS
  Company Number: US-EXELIXIS-CABO-24076832

PATIENT
  Age: 64 Year
  Sex: Male

DRUGS (7)
  1. CABOMETYX [Suspect]
     Active Substance: CABOZANTINIB S-MALATE
     Indication: Paraganglion neoplasm malignant
     Dosage: 40 MG, QD
     Dates: start: 20240405
  2. CABOMETYX [Suspect]
     Active Substance: CABOZANTINIB S-MALATE
     Dosage: 40 MG, QD
     Dates: start: 20240610
  3. OPDIVO [Suspect]
     Active Substance: NIVOLUMAB
     Indication: Paraganglion neoplasm malignant
     Dosage: UNK, Q2WEEKS
     Dates: start: 20240405
  4. DOXAZOSIN [Concomitant]
     Active Substance: DOXAZOSIN MESYLATE
  5. LABETALOL [Concomitant]
     Active Substance: LABETALOL
  6. ZOMETA [Concomitant]
     Active Substance: ZOLEDRONIC ACID
  7. CARVEDILOL [Concomitant]
     Active Substance: CARVEDILOL

REACTIONS (10)
  - Blood pressure increased [Recovering/Resolving]
  - Blood thyroid stimulating hormone abnormal [Unknown]
  - Fatigue [Not Recovered/Not Resolved]
  - Constipation [Recovered/Resolved]
  - Dizziness [Recovered/Resolved]
  - Pain in extremity [Recovering/Resolving]
  - Dyspepsia [Unknown]
  - Tinea infection [Recovering/Resolving]
  - Skin lesion [Unknown]
  - Off label use [Unknown]

NARRATIVE: CASE EVENT DATE: 20240401
